FAERS Safety Report 11631750 (Version 6)
Quarter: 2017Q1

REPORT INFORMATION
  Report Type: Report from Study
  Country: CA (occurrence: CA)
  Receive Date: 20151015
  Receipt Date: 20170109
  Transmission Date: 20170428
  Serious: Yes (Other)
  Sender: FDA-Public Use
  Company Number: CA-ROCHE-1389860

PATIENT
  Age: 49 Year
  Sex: Female
  Weight: 85 kg

DRUGS (12)
  1. METHYLPREDNISOLONE. [Concomitant]
     Active Substance: METHYLPREDNISOLONE
     Route: 042
     Dates: start: 20150514
  2. NAPROXEN. [Concomitant]
     Active Substance: NAPROXEN
     Indication: RHEUMATOID ARTHRITIS
  3. CRESTOR [Suspect]
     Active Substance: ROSUVASTATIN CALCIUM
     Indication: BLOOD CHOLESTEROL INCREASED
     Route: 065
     Dates: start: 20140908
  4. VITAMIN C [Concomitant]
     Active Substance: ASCORBIC ACID
  5. ACTEMRA [Suspect]
     Active Substance: TOCILIZUMAB
     Indication: RHEUMATOID ARTHRITIS
     Route: 042
     Dates: start: 20140226
  6. CANDESARTAN [Concomitant]
     Active Substance: CANDESARTAN
     Indication: BLOOD PRESSURE MEASUREMENT
  7. RITUXAN [Suspect]
     Active Substance: RITUXIMAB
     Indication: RHEUMATOID ARTHRITIS
     Dosage: DAY 1, 15
     Route: 042
     Dates: start: 20150514
  8. AMOXICILLIN. [Concomitant]
     Active Substance: AMOXICILLIN
  9. DIPHENHYDRAMINE HCL [Concomitant]
     Active Substance: DIPHENHYDRAMINE HYDROCHLORIDE
     Route: 048
     Dates: start: 20150514
  10. ACETAMINOPHEN. [Concomitant]
     Active Substance: ACETAMINOPHEN
     Route: 048
     Dates: start: 20150514
  11. ACTEMRA [Suspect]
     Active Substance: TOCILIZUMAB
     Route: 042
     Dates: start: 20140818, end: 20150309
  12. OMEGA 3 [Concomitant]
     Active Substance: OMEGA-3 FATTY ACIDS

REACTIONS (15)
  - Weight increased [Not Recovered/Not Resolved]
  - Blood cholesterol increased [Not Recovered/Not Resolved]
  - Diverticulitis [Unknown]
  - Blood pressure fluctuation [Unknown]
  - Cough [Unknown]
  - Hepatic enzyme increased [Unknown]
  - Type 2 diabetes mellitus [Not Recovered/Not Resolved]
  - Heart rate increased [Unknown]
  - Skin ulcer [Recovered/Resolved]
  - Influenza [Recovered/Resolved]
  - Productive cough [Not Recovered/Not Resolved]
  - Nasopharyngitis [Recovered/Resolved]
  - Infusion related reaction [Unknown]
  - Influenza like illness [Recovered/Resolved]
  - Heart rate increased [Unknown]

NARRATIVE: CASE EVENT DATE: 201405
